FAERS Safety Report 26095396 (Version 2)
Quarter: 2025Q4

REPORT INFORMATION
  Report Type: Report from Study
  Country: US (occurrence: US)
  Receive Date: 20251127
  Receipt Date: 20251225
  Transmission Date: 20260118
  Serious: Yes (Hospitalization, Other)
  Sender: DECIPHERA PHARMACEUTICALS
  Company Number: US-DECIPHERA PHARMACEUTICALS LLC-2025US001471

PATIENT
  Age: 76 Year
  Sex: Male

DRUGS (5)
  1. QINLOCK [Suspect]
     Active Substance: RIPRETINIB
     Indication: Gastrointestinal stromal tumour
     Dosage: 50 MILLIGRAM, QD (1 TABLET ONCE DAILY)
     Route: 061
     Dates: start: 20250226, end: 20251118
  2. QINLOCK [Suspect]
     Active Substance: RIPRETINIB
     Dosage: 50 MILLIGRAM, QD (50 MG, 1 TABLET ONCE DAILY BY MOUTH ON MONDAY, WEDNESDAY, AND FRIDAY, IN THE MORNING)
     Route: 061
     Dates: start: 20251119
  3. QINLOCK [Suspect]
     Active Substance: RIPRETINIB
     Dosage: 100 MILLIGRAM, QD (50 MG, 2 TABLETS ONCE DAILY BY MOUTH ON TUESDAY, THURSDAY, SATURDAY, AND SUNDAY, IN THE MORNING)
     Route: 061
     Dates: start: 20251120
  4. XARELTO [Suspect]
     Active Substance: RIVAROXABAN
     Indication: Product used for unknown indication
     Dosage: UNK
  5. LISINOPRIL [Concomitant]
     Active Substance: LISINOPRIL
     Indication: Product used for unknown indication
     Dosage: UNK

REACTIONS (4)
  - Diverticulum intestinal haemorrhagic [Unknown]
  - Sleep disorder [Unknown]
  - Incorrect dosage administered [Unknown]
  - Inappropriate schedule of product administration [Unknown]

NARRATIVE: CASE EVENT DATE: 20250101
